FAERS Safety Report 5132389-2 (Version None)
Quarter: 2006Q4

REPORT INFORMATION
  Report Type: 
  Country: None (occurrence: None)
  Receive Date: 20061017
  Receipt Date: 20060927
  Transmission Date: 20070319
  Serious: Yes (Other)
  Sender: FDA-Public Use
  Company Number: 2006125092

PATIENT
  Age: 53 Year
  Sex: Male

DRUGS (6)
  1. LYRICA [Suspect]
     Indication: PAIN
     Dosage: 100 MG (100 MG, 1 IN 1 D), ORAL
     Route: 048
  2. INDOMET (INDOMETACIN) [Concomitant]
  3. PALLADONE [Concomitant]
  4. IBUPROFEN [Concomitant]
  5. NOVALGIN (METAMIZOLE SODIUM) [Concomitant]
  6. KATADOLON (FLUPIRTINE  MALEATE) [Concomitant]

REACTIONS (2)
  - FACIAL PALSY [None]
  - HYPOAESTHESIA [None]
